FAERS Safety Report 17880643 (Version 2)
Quarter: 2020Q2

REPORT INFORMATION
  Report Type: Spontaneous
  Country: BE (occurrence: BE)
  Receive Date: 20200610
  Receipt Date: 20200615
  Transmission Date: 20200714
  Serious: Yes (Hospitalization, Other)
  Sender: FDA-Public Use
  Company Number: BE-PFIZER INC-2020222983

PATIENT
  Age: 40 Year
  Sex: Male

DRUGS (5)
  1. FOLINIC ACID [Suspect]
     Active Substance: LEUCOVORIN
     Indication: COLON CANCER
     Dosage: UNK UNK, CYCLIC (PART OF FOLFOX AND FOLFIRI REGIMEN)
  2. OXALIPLATIN. [Suspect]
     Active Substance: OXALIPLATIN
     Indication: COLON CANCER
     Dosage: UNK UNK, CYCLIC (PART OF FOLFOX REGIMEN)
  3. IRINOTECAN HCL [Suspect]
     Active Substance: IRINOTECAN HYDROCHLORIDE
     Indication: COLON CANCER
     Dosage: UNK, CYCLIC (PART OF FOLFIRI REGIMEN)
  4. PANITUMUMAB [Suspect]
     Active Substance: PANITUMUMAB
     Indication: COLON CANCER
     Dosage: UNK UNK, CYCLIC
  5. FLUOROURACIL. [Suspect]
     Active Substance: FLUOROURACIL
     Indication: COLON CANCER
     Dosage: UNK UNK, CYCLIC (PART OF FOLFOX AND FOLFIRI REGIMEN)

REACTIONS (3)
  - Pulmonary sarcoidosis [Recovering/Resolving]
  - Blindness [Recovered/Resolved]
  - Neurosarcoidosis [Recovering/Resolving]
